FAERS Safety Report 4495730-X (Version None)
Quarter: 2004Q4

REPORT INFORMATION
  Report Type: 
  Country: None (occurrence: None)
  Receive Date: 20041108
  Receipt Date: 20041026
  Transmission Date: 20050328
  Serious: Yes (Life-Threatening, Hospitalization, Other)
  Sender: FDA-Public Use
  Company Number: US-MERCK-0410USA03833

PATIENT
  Age: 74 Year
  Sex: Female

DRUGS (5)
  1. VIOXX [Suspect]
     Indication: PAIN
     Route: 048
     Dates: start: 20000101, end: 20020301
  2. VIOXX [Suspect]
     Route: 048
     Dates: start: 20020601, end: 20020601
  3. LIPITOR [Concomitant]
     Route: 065
  4. NEURONTIN [Concomitant]
     Route: 065
  5. METOPROLOL [Concomitant]
     Route: 065

REACTIONS (4)
  - CARDIAC FAILURE CONGESTIVE [None]
  - CORONARY ARTERY DISEASE [None]
  - OVERDOSE [None]
  - PULMONARY OEDEMA [None]
